FAERS Safety Report 7676805-0 (Version None)
Quarter: 2011Q3

REPORT INFORMATION
  Report Type: 
  Country: None (occurrence: None)
  Receive Date: 20110805
  Receipt Date: 20110721
  Transmission Date: 20111222
  Serious: Yes (Hospitalization, Disabling, Other)
  Sender: FDA-Public Use
  Company Number: 2011MA009277

PATIENT
  Age: 25 Year
  Sex: Female

DRUGS (4)
  1. VERAPAMIL HCL [Suspect]
     Indication: INTENTIONAL OVERDOSE
     Dosage: 1000 MG; 1X;
  2. CLONAZEPAM [Suspect]
     Indication: DEPRESSION
     Dosage: 1 MG;
  3. METOPROLOL TARTRATE [Suspect]
     Indication: INTENTIONAL OVERDOSE
     Dosage: 1000 MG;1X
  4. SERTRALINE HYDROCHLORIDE [Suspect]
     Indication: DEPRESSION
     Dosage: 50 MG;

REACTIONS (15)
  - ATRIOVENTRICULAR BLOCK SECOND DEGREE [None]
  - COMA SCALE ABNORMAL [None]
  - METABOLIC ACIDOSIS [None]
  - LETHARGY [None]
  - PULSE ABSENT [None]
  - SUICIDE ATTEMPT [None]
  - DISORIENTATION [None]
  - BLOOD PRESSURE DECREASED [None]
  - MULTIPLE DRUG OVERDOSE INTENTIONAL [None]
  - OPTIC ISCHAEMIC NEUROPATHY [None]
  - VISUAL FIELD DEFECT [None]
  - IRRITABILITY [None]
  - COLD SWEAT [None]
  - PERIPHERAL COLDNESS [None]
  - BRADYCARDIA [None]
